FAERS Safety Report 21035440 (Version 1)
Quarter: 2022Q3

REPORT INFORMATION
  Report Type: Spontaneous
  Country: RO (occurrence: RO)
  Receive Date: 20220701
  Receipt Date: 20220701
  Transmission Date: 20221027
  Serious: Yes (Hospitalization, Other)
  Sender: FDA-Public Use
  Company Number: RO-AMGEN-ROUSP2022105767

PATIENT
  Age: 61 Year
  Sex: Female

DRUGS (5)
  1. OXALIPLATIN [Suspect]
     Active Substance: OXALIPLATIN
     Indication: Colorectal cancer metastatic
     Dosage: UNK UNK, Q2WK
     Route: 042
     Dates: start: 202003, end: 202101
  2. FLUOROURACIL [Suspect]
     Active Substance: FLUOROURACIL
     Indication: Colorectal cancer metastatic
     Dosage: UNK UNK, Q2WK
     Route: 042
     Dates: start: 202003, end: 202106
  3. LEUCOVORIN [Suspect]
     Active Substance: LEUCOVORIN
     Indication: Colorectal cancer metastatic
     Dosage: UNK UNK, Q2WK
     Route: 042
     Dates: start: 202003, end: 202106
  4. VECTIBIX [Suspect]
     Active Substance: PANITUMUMAB
     Indication: Colorectal cancer metastatic
     Dosage: UNK, 8 MONTHS TREATMENT, INITIATED-??-OCT-2020
     Route: 042
     Dates: end: 202106
  5. VECTIBIX [Suspect]
     Active Substance: PANITUMUMAB
     Dosage: UNK, 5 MONTHS TREATMENT
     Route: 042
     Dates: start: 202003, end: 202008

REACTIONS (9)
  - Abdominal pain upper [Unknown]
  - Dysarthria [Unknown]
  - Peripheral sensory neuropathy [Unknown]
  - Dermatitis acneiform [Unknown]
  - Colorectal cancer metastatic [Unknown]
  - Hemiparesis [Unknown]
  - Headache [Unknown]
  - COVID-19 [Unknown]
  - Asthenia [Unknown]

NARRATIVE: CASE EVENT DATE: 20200101
